FAERS Safety Report 8151281-2 (Version None)
Quarter: 2012Q1

REPORT INFORMATION
  Report Type: 
  Country: None (occurrence: None)
  Receive Date: 20120220
  Receipt Date: 20120216
  Transmission Date: 20120608
  Serious: Yes (Life-Threatening, Hospitalization)
  Sender: FDA-Public Use
  Company Number: IT-BAYER-2012-015956

PATIENT
  Age: 72 Year
  Sex: Male

DRUGS (1)
  1. ULTRAVIST 150 [Suspect]
     Indication: PRODUCT USED FOR UNKNOWN INDICATION
     Dosage: 120 ML, ONCE
     Route: 042
     Dates: start: 20120202, end: 20120202

REACTIONS (3)
  - RESPIRATORY FAILURE [None]
  - CYANOSIS [None]
  - DISORIENTATION [None]
